FAERS Safety Report 6183636-X (Version None)
Quarter: 2009Q2

REPORT INFORMATION
  Report Type: 
  Country: None (occurrence: None)
  Receive Date: 20090508
  Receipt Date: 20090505
  Transmission Date: 20091009
  Serious: Yes (Hospitalization)
  Sender: FDA-Public Use
  Company Number: US-JNJFOC-20090501446

PATIENT
  Age: 53 Year
  Sex: Female
  Weight: 36.29 kg

DRUGS (4)
  1. LEVAQUIN [Suspect]
     Route: 048
  2. LEVAQUIN [Suspect]
     Indication: PNEUMONIA
     Route: 048
  3. CLINDAMYCIN HCL [Concomitant]
     Indication: PNEUMONIA
     Route: 048
  4. METFORMIN HCL [Concomitant]
     Indication: BLOOD GLUCOSE ABNORMAL
     Route: 048

REACTIONS (4)
  - GASTRIC ULCER [None]
  - HYPOAESTHESIA [None]
  - ORAL CANDIDIASIS [None]
  - WEIGHT DECREASED [None]
